FAERS Safety Report 5046232-3 (Version None)
Quarter: 2006Q3

REPORT INFORMATION
  Report Type: 
  Country: None (occurrence: None)
  Receive Date: 20060710
  Receipt Date: 20060413
  Transmission Date: 20061208
  Serious: Yes (Life-Threatening, Other)
  Sender: FDA-Public Use
  Company Number: US-BRISTOL-MYERS SQUIBB COMPANY-13347190

PATIENT
  Age: 70 Year
  Sex: Male
  Weight: 112 kg

DRUGS (5)
  1. DEFINITY [Suspect]
     Indication: ULTRASOUND SCAN
     Route: 040
     Dates: start: 20060412
  2. BETAPACE [Concomitant]
  3. LIPITOR [Concomitant]
  4. TOPROL-XL [Concomitant]
  5. CARDIZEM [Concomitant]
     Dosage: ROUTE OF ADMINISTRATION: IV AND THEN ORAL.

REACTIONS (7)
  - BLOOD PRESSURE DECREASED [None]
  - CHEST DISCOMFORT [None]
  - DYSPNOEA [None]
  - SKIN DISCOLOURATION [None]
  - TACHYPNOEA [None]
  - URTICARIA [None]
  - VOMITING [None]
